FAERS Safety Report 9649766 (Version 3)
Quarter: 2013Q4

REPORT INFORMATION
  Report Type: Spontaneous
  Country: FR (occurrence: FR)
  Receive Date: 20131028
  Receipt Date: 20131204
  Transmission Date: 20140711
  Serious: Yes (Other)
  Sender: FDA-Public Use
  Company Number: FR-GILEAD-2013-0086124

PATIENT
  Age: 68 Year
  Sex: Male
  Weight: 57 kg

DRUGS (4)
  1. EVIPLERA [Suspect]
     Indication: HIV INFECTION
     Dosage: 1 DF, QD
     Route: 048
     Dates: start: 20130829, end: 20130831
  2. GLUCOPHAGE [Concomitant]
     Indication: DIABETES MELLITUS
     Dosage: 2 DF, QD
  3. DIAMICRON [Concomitant]
     Indication: DIABETES MELLITUS
     Dosage: 2 DF, QD
  4. TRIOMUNE [Concomitant]
     Indication: HIV INFECTION
     Dosage: UNK
     Dates: end: 20130823

REACTIONS (1)
  - Diabetes mellitus [Recovered/Resolved]
